FAERS Safety Report 8007834-5 (Version None)
Quarter: 2011Q4

REPORT INFORMATION
  Report Type: 
  Country: None (occurrence: None)
  Receive Date: 20111227
  Receipt Date: 20111222
  Transmission Date: 20120403
  Serious: Yes (Other)
  Sender: FDA-Public Use
  Company Number: JP-B.I. PHARMACEUTICALS,INC./RIDGEFIELD-2011-BP-28590NB

PATIENT
  Age: 69 Year
  Sex: Male
  Weight: 80 kg

DRUGS (5)
  1. VENA PASTA [Concomitant]
     Indication: DERMATITIS
     Route: 065
  2. PRADAXA [Suspect]
     Indication: CEREBROVASCULAR ACCIDENT PROPHYLAXIS
     Dosage: 220 MG
     Route: 048
     Dates: start: 20111110, end: 20111215
  3. MOHRUS TAPE [Concomitant]
     Indication: BACK PAIN
     Route: 065
  4. ACECOL [Concomitant]
     Indication: HYPERTENSION
     Dosage: 2 MG
     Route: 048
  5. CARVEDILOL [Concomitant]
     Indication: HYPERTENSION
     Dosage: 20 MG
     Route: 048

REACTIONS (1)
  - BILE DUCT CANCER [None]
